FAERS Safety Report 8596249-7 (Version None)
Quarter: 2012Q3

REPORT INFORMATION
  Report Type: 
  Country: None (occurrence: None)
  Receive Date: 20120815
  Receipt Date: 20120807
  Transmission Date: 20120928
  Serious: Yes (Other)
  Sender: FDA-Public Use
  Company Number: US-BAYER-2012-076329

PATIENT
  Age: 82 Year
  Sex: Male
  Weight: 77.11 kg

DRUGS (5)
  1. XARELTO [Interacting]
     Indication: CEREBROVASCULAR ACCIDENT PROPHYLAXIS
     Dosage: 15 MG, QD
     Route: 048
     Dates: start: 20120701, end: 20120721
  2. CARVEDILOL [Concomitant]
     Indication: HEART RATE ABNORMAL
  3. FLECAINIDE ACETATE [Concomitant]
     Indication: HEART RATE ABNORMAL
  4. XARELTO [Interacting]
     Indication: ATRIAL FIBRILLATION
  5. ASPIRIN [Suspect]

REACTIONS (1)
  - BLOOD URINE PRESENT [None]
